FAERS Safety Report 10744697 (Version 1)
Quarter: 2015Q1

REPORT INFORMATION
  Report Type: Spontaneous
  Country: US (occurrence: None)
  Receive Date: 20150120
  Receipt Date: 20150120
  Transmission Date: 20150721
  Serious: No
  Sender: FDA-Public Use
  Company Number: AEGR000833

PATIENT
  Age: 42 Year
  Sex: Male
  Weight: 70.3 kg

DRUGS (9)
  1. PROTONIX [Concomitant]
     Active Substance: PANTOPRAZOLE SODIUM
  2. WELCHOL (COLESEVELAM HYDROCHLORIDE) (625 MILLIGRAM, TABLET) (COLESEVELAM HYDROCHLORIDE) [Concomitant]
     Active Substance: COLESEVELAM HYDROCHLORIDE
  3. TOPROL (METOPROLOL SUCCINATE) [Concomitant]
  4. BABY ASPIRIN (ACETYLSALYLIC ACID) [Concomitant]
  5. ATORVASTATIN (ATORVASTATIN CALCIUM) [Concomitant]
  6. NORVASC [Concomitant]
     Active Substance: AMLODIPINE BESYLATE
  7. ZETIA [Concomitant]
     Active Substance: EZETIMIBE
  8. JUXTAPID [Suspect]
     Active Substance: LOMITAPIDE MESYLATE
     Indication: TYPE IIA HYPERLIPIDAEMIA
     Route: 048
     Dates: start: 201406, end: 2014
  9. PLAVIX (CLOPIDOGREL BISULFATE) [Concomitant]

REACTIONS (5)
  - Abdominal discomfort [None]
  - Diarrhoea [None]
  - Nausea [None]
  - Weight decreased [None]
  - Therapy cessation [None]

NARRATIVE: CASE EVENT DATE: 2014
